FAERS Safety Report 4644550-1 (Version None)
Quarter: 2005Q2

REPORT INFORMATION
  Report Type: 
  Country: None (occurrence: None)
  Receive Date: 20050331
  Receipt Date: 20050128
  Transmission Date: 20051028
  Serious: No
  Sender: FDA-Public Use
  Company Number: 04P-163-0253810-00

PATIENT
  Age: 81 Year
  Sex: Female

DRUGS (11)
  1. HUMIRA [Suspect]
     Indication: RHEUMATOID ARTHRITIS
     Dosage: 40 MG, 1 IN 2 WK, SUBCUTANEOUS;  40 MG, 1 IN 2 WK, SUBCUTANEOUS;  40 MG, 1 IN 1 WK, SUBCUTANEOUS
     Route: 058
     Dates: start: 20040101, end: 20040101
  2. HUMIRA [Suspect]
     Indication: RHEUMATOID ARTHRITIS
     Dosage: 40 MG, 1 IN 2 WK, SUBCUTANEOUS;  40 MG, 1 IN 2 WK, SUBCUTANEOUS;  40 MG, 1 IN 1 WK, SUBCUTANEOUS
     Route: 058
     Dates: start: 20040203, end: 20041201
  3. HUMIRA [Suspect]
     Indication: RHEUMATOID ARTHRITIS
     Dosage: 40 MG, 1 IN 2 WK, SUBCUTANEOUS;  40 MG, 1 IN 2 WK, SUBCUTANEOUS;  40 MG, 1 IN 1 WK, SUBCUTANEOUS
     Route: 058
     Dates: start: 20041201
  4. ALENDRONATE SODIUM [Concomitant]
  5. HYDROCODONE BITARTRATE [Concomitant]
  6. PREDNISONE [Concomitant]
  7. PROPRANOLOL [Concomitant]
  8. FISH OIL [Concomitant]
  9. CALCIUM CARBONATE [Concomitant]
  10. ACETYL SALICYLIC ACID USP BAT [Concomitant]
  11. FOLIC ACID [Concomitant]

REACTIONS (2)
  - INJECTION SITE IRRITATION [None]
  - RASH [None]
